FAERS Safety Report 4321108-5 (Version None)
Quarter: 2004Q1

REPORT INFORMATION
  Report Type: 
  Country: None (occurrence: None)
  Receive Date: 20040322
  Receipt Date: 20040322
  Transmission Date: 20041129
  Serious: Yes (Hospitalization)
  Sender: FDA-Public Use
  Company Number: None

PATIENT
  Sex: Male

DRUGS (2)
  1. NAPROSYN [Suspect]
  2. IBUPROFEN [Suspect]

REACTIONS (4)
  - GASTRITIS [None]
  - HIATUS HERNIA [None]
  - ULCER [None]
  - UPPER GASTROINTESTINAL HAEMORRHAGE [None]
